FAERS Safety Report 8281879-2 (Version None)
Quarter: 2012Q2

REPORT INFORMATION
  Report Type: 
  Country: None (occurrence: None)
  Receive Date: 20120413
  Receipt Date: 20120403
  Transmission Date: 20120825
  Serious: Yes (Hospitalization)
  Sender: FDA-Public Use
  Company Number: US-CELGENEUS-163-CCAZA-12032330

PATIENT
  Sex: Male
  Weight: 104.6 kg

DRUGS (39)
  1. VORINOSTAT [Suspect]
     Dosage: 400 MILLIGRAM
     Route: 048
     Dates: start: 20120302, end: 20120310
  2. HYDROCORTISONE [Concomitant]
     Indication: ADVERSE DRUG REACTION
     Dosage: 50 MILLIGRAM
     Route: 048
     Dates: start: 20111205, end: 20111205
  3. DIPHENHYDRAMINE HCL [Concomitant]
     Dosage: 25 MILLIGRAM
     Route: 048
     Dates: start: 20111205, end: 20111205
  4. DIPHENHYDRAMINE HCL [Concomitant]
     Dosage: 25 MILLIGRAM
     Route: 048
     Dates: start: 20111226, end: 20111226
  5. ACETAMINOPHEN [Concomitant]
     Dosage: 650 MILLIGRAM
     Route: 048
     Dates: start: 20111209, end: 20111209
  6. MYLOTARG [Suspect]
     Dosage: 3 MILLIGRAM/SQ. METER
     Route: 041
     Dates: start: 20111205, end: 20111205
  7. MYLOTARG [Suspect]
     Dosage: 6.69 MILLIGRAM
     Route: 065
     Dates: start: 20120309, end: 20120309
  8. VORINOSTAT [Suspect]
     Dosage: 400 MILLIGRAM
     Route: 048
     Dates: start: 20111202, end: 20111210
  9. RED CELL [Concomitant]
     Route: 041
     Dates: start: 20120101, end: 20120101
  10. HYDROCORTISONE [Concomitant]
     Dosage: 50 MILLIGRAM
     Route: 048
     Dates: start: 20111230, end: 20111230
  11. VIDAZA [Suspect]
     Dosage: 167 MILLIGRAM
     Route: 041
     Dates: start: 20120302, end: 20120308
  12. MYLOTARG [Suspect]
     Dosage: 6.69 MILLIGRAM
     Route: 065
     Dates: start: 20120210, end: 20120210
  13. CLARITIN [Concomitant]
     Dosage: 10 MILLIGRAM
     Route: 048
  14. PLATELETS [Concomitant]
     Route: 041
     Dates: start: 20120101, end: 20120101
  15. ATIVAN [Concomitant]
     Dosage: 1 MILLIGRAM
     Route: 048
  16. VIDAZA [Suspect]
     Dosage: 75 MILLIGRAM/SQ. METER
     Route: 041
     Dates: start: 20111202, end: 20111208
  17. MYLOTARG [Suspect]
     Dosage: 6.75 MILLIGRAM
     Route: 065
     Dates: start: 20120206, end: 20120206
  18. MYLOTARG [Suspect]
     Dosage: 6.69 MILLIGRAM
     Route: 065
     Dates: start: 20120305, end: 20120305
  19. METFORMIN HCL [Concomitant]
     Dosage: 500 MILLIGRAM
     Route: 048
  20. HYDROCORTISONE [Concomitant]
     Dosage: 50 MILLIGRAM
     Route: 048
     Dates: start: 20111209, end: 20111209
  21. MYLOTARG [Suspect]
     Dosage: 3 MILLIGRAM/SQ. METER
     Route: 041
     Dates: start: 20111230, end: 20111230
  22. PROTONIX [Concomitant]
     Dosage: 40 MILLIGRAM
     Route: 048
  23. VORINOSTAT [Suspect]
     Dosage: 400 MILLIGRAM
     Route: 048
     Dates: start: 20111223, end: 20111231
  24. VORINOSTAT [Suspect]
     Dosage: 400 MILLIGRAM
     Route: 048
     Dates: start: 20120203, end: 20120211
  25. COMPAZINE [Concomitant]
     Route: 048
  26. HYDROCORTISONE [Concomitant]
     Dosage: 50 MILLIGRAM
     Route: 048
     Dates: start: 20111226, end: 20111226
  27. VIDAZA [Suspect]
     Dosage: 75 MILLIGRAM/SQ. METER
     Route: 041
     Dates: start: 20111223, end: 20111229
  28. VIDAZA [Suspect]
     Dosage: 75 MILLIGRAM/SQ. METER
     Route: 041
     Dates: start: 20120203, end: 20120209
  29. COZAAR [Concomitant]
     Dosage: 50 MILLIGRAM
     Route: 048
  30. HYDROCORTISONE [Concomitant]
     Dosage: 50 MILLIGRAM
     Route: 048
     Dates: start: 20120305
  31. DIPHENHYDRAMINE HCL [Concomitant]
     Dosage: 25 MILLIGRAM
     Route: 048
     Dates: start: 20111209, end: 20111209
  32. DIPHENHYDRAMINE HCL [Concomitant]
     Dosage: 25 MILLIGRAM
     Route: 048
     Dates: start: 20111230, end: 20111230
  33. ACETAMINOPHEN [Concomitant]
     Dosage: 650 MILLIGRAM
     Route: 048
     Dates: start: 20111226, end: 20111226
  34. ACETAMINOPHEN [Concomitant]
     Dosage: 650 MILLIGRAM
     Route: 048
     Dates: start: 20111230, end: 20111230
  35. PROCHLORPERAZINE [Concomitant]
     Indication: PREMEDICATION
     Dosage: 10 MILLIGRAM
     Route: 048
     Dates: start: 20111202
  36. MYLOTARG [Suspect]
     Dosage: 3 MILLIGRAM/SQ. METER
     Route: 041
     Dates: start: 20111209, end: 20111209
  37. MYLOTARG [Suspect]
     Dosage: 3 MILLIGRAM/SQ. METER
     Route: 041
     Dates: start: 20111226, end: 20111226
  38. ACTOS [Concomitant]
     Dosage: 15 MILLIGRAM
     Route: 048
  39. ACETAMINOPHEN [Concomitant]
     Dosage: 650 MILLIGRAM
     Route: 048
     Dates: start: 20111205, end: 20111205

REACTIONS (8)
  - FAECES HARD [None]
  - ADVERSE DRUG REACTION [None]
  - ANORECTAL INFECTION BACTERIAL [None]
  - WHITE BLOOD CELL COUNT DECREASED [None]
  - PYREXIA [None]
  - SOFT TISSUE INFECTION [None]
  - PERIRECTAL ABSCESS [None]
  - DEVICE RELATED INFECTION [None]
